FAERS Safety Report 20127349 (Version 10)
Quarter: 2023Q2

REPORT INFORMATION
  Report Type: Report from Study
  Country: CO (occurrence: CO)
  Receive Date: 20211129
  Receipt Date: 20230410
  Transmission Date: 20230722
  Serious: Yes (Death, Hospitalization, Other)
  Sender: FDA-Public Use
  Company Number: CO-002147023-NVSC2021CO184359

PATIENT

DRUGS (12)
  1. RUXOLITINIB [Suspect]
     Active Substance: RUXOLITINIB
     Indication: Myelofibrosis
     Dosage: 5 MG, Q12H
     Route: 048
  2. RUXOLITINIB [Suspect]
     Active Substance: RUXOLITINIB
     Dosage: 15 MG, Q12H
     Route: 048
     Dates: start: 202105, end: 20211130
  3. RUXOLITINIB [Suspect]
     Active Substance: RUXOLITINIB
     Dosage: 10 MG, Q12H
     Route: 048
     Dates: start: 202111
  4. RUXOLITINIB [Suspect]
     Active Substance: RUXOLITINIB
     Dosage: UNK
     Route: 048
  5. RUXOLITINIB [Suspect]
     Active Substance: RUXOLITINIB
     Dosage: 15 MG, BID
     Route: 048
  6. RUXOLITINIB [Suspect]
     Active Substance: RUXOLITINIB
     Dosage: 15 MG, Q12H
     Route: 048
  7. RUXOLITINIB [Suspect]
     Active Substance: RUXOLITINIB
     Dosage: 20 MG, Q12H
     Route: 048
     Dates: start: 20220505
  8. RUXOLITINIB [Suspect]
     Active Substance: RUXOLITINIB
     Dosage: 40 MG, QD
     Route: 048
  9. RUXOLITINIB [Suspect]
     Active Substance: RUXOLITINIB
     Dosage: UNK
     Route: 048
  10. INSULIN NOS [Concomitant]
     Active Substance: INSULIN NOS
     Indication: Type 1 diabetes mellitus
     Dosage: UNK 8 UNITS AT NIGHT FROM 7 YEARS AGO
     Route: 048
  11. JANUMET [Concomitant]
     Active Substance: METFORMIN HYDROCHLORIDE\SITAGLIPTIN PHOSPHATE
     Indication: Type 1 diabetes mellitus
     Dosage: 1000 MG, BID (FROM 7 YEARS AGO)
     Route: 048
  12. LOSARTAN [Concomitant]
     Active Substance: LOSARTAN
     Indication: Hypertension
     Dosage: 25 MG, BID 7 YEARS AGO
     Route: 048

REACTIONS (15)
  - Malaise [Unknown]
  - Hypersensitivity [Unknown]
  - Chills [Unknown]
  - Cough [Unknown]
  - Discouragement [Unknown]
  - Feeling abnormal [Unknown]
  - Haemoglobin decreased [Unknown]
  - Gastritis [Unknown]
  - Urticaria [Unknown]
  - Death [Fatal]
  - Inappropriate schedule of product administration [Unknown]
  - Choking [Unknown]
  - Fatigue [Unknown]
  - Product dose omission issue [Unknown]
  - Asthenia [Unknown]

NARRATIVE: CASE EVENT DATE: 20210801
